FAERS Safety Report 7097970-2 (Version None)
Quarter: 2010Q4

REPORT INFORMATION
  Report Type: 
  Country: None (occurrence: None)
  Receive Date: 20101112
  Receipt Date: 20091228
  Transmission Date: 20110411
  Serious: No
  Sender: FDA-Public Use
  Company Number: US-BAYER-201010237NA

PATIENT
  Sex: Female

DRUGS (1)
  1. MIRENA [Suspect]
     Indication: CONTRACEPTION
     Route: 015
     Dates: start: 20090801

REACTIONS (5)
  - DIZZINESS [None]
  - FOOD CRAVING [None]
  - MIGRAINE [None]
  - POLLAKIURIA [None]
  - VAGINAL HAEMORRHAGE [None]
